FAERS Safety Report 6628435-7 (Version None)
Quarter: 2010Q1

REPORT INFORMATION
  Report Type: 
  Country: None (occurrence: None)
  Receive Date: 20100311
  Receipt Date: 20100302
  Transmission Date: 20100710
  Serious: Yes (Death, Hospitalization)
  Sender: FDA-Public Use
  Company Number: DE-ROCHE-689888

PATIENT
  Sex: Male
  Weight: 67 kg

DRUGS (4)
  1. BEVACIZUMAB [Suspect]
     Indication: PANCOAST'S TUMOUR
     Route: 042
     Dates: start: 20100202
  2. TAXOTERE [Suspect]
     Indication: PANCOAST'S TUMOUR
     Route: 042
     Dates: start: 20100202
  3. RIBOCARBO [Suspect]
     Indication: PANCOAST'S TUMOUR
     Dosage: DOSE: AUC5
     Route: 042
     Dates: start: 20100202
  4. ALOXI [Concomitant]
     Indication: ANTIEMETIC SUPPORTIVE CARE
     Route: 048
     Dates: start: 20100129, end: 20100214

REACTIONS (8)
  - ATRIAL FIBRILLATION [None]
  - BRONCHOPNEUMONIA [None]
  - CONFUSIONAL STATE [None]
  - DEHYDRATION [None]
  - GASTROENTERITIS [None]
  - HYPOKALAEMIA [None]
  - RENAL FAILURE [None]
  - SEPSIS [None]
